FAERS Safety Report 8293842-6 (Version None)
Quarter: 2012Q2

REPORT INFORMATION
  Report Type: 
  Country: None (occurrence: None)
  Receive Date: 20120418
  Receipt Date: 20120412
  Transmission Date: 20120825
  Serious: No
  Sender: FDA-Public Use
  Company Number: US-PFIZER INC-2011071214

PATIENT
  Sex: Male
  Weight: 81.633 kg

DRUGS (9)
  1. LORATADINE [Concomitant]
  2. TIKOSYN [Suspect]
     Indication: ATRIAL FIBRILLATION
     Dosage: UNK, 2X/DAY
     Route: 048
     Dates: start: 20101201
  3. COUMADIN [Concomitant]
     Dosage: UNK
  4. LISINOPRIL [Concomitant]
  5. SPIRIVA [Concomitant]
     Dosage: 18MG ONE INH DAILY
  6. ALLOPURINOL [Concomitant]
  7. ACEBUTOLOL [Concomitant]
  8. RANITIDINE [Concomitant]
     Dosage: UNK
  9. LOVASTATIN [Concomitant]

REACTIONS (5)
  - RHINORRHOEA [None]
  - DYSPNOEA [None]
  - MALAISE [None]
  - OROPHARYNGEAL PAIN [None]
  - HEADACHE [None]
